FAERS Safety Report 9232999 (Version 1)
Quarter: 2013Q2

REPORT INFORMATION
  Report Type: Spontaneous
  Country: CA (occurrence: None)
  Receive Date: 20130412
  Receipt Date: 20130412
  Transmission Date: 20140414
  Serious: Yes (Other)
  Sender: FDA-Public Use
  Company Number: CA-1197425

PATIENT
  Sex: Female

DRUGS (1)
  1. TRAVATAN Z [Suspect]
     Route: 047
     Dates: start: 201212

REACTIONS (3)
  - Eyelid thickening [None]
  - Growth of eyelashes [None]
  - Iris hyperpigmentation [None]
